FAERS Safety Report 10099378 (Version 1)
Quarter: 2014Q2

REPORT INFORMATION
  Report Type: Spontaneous
  Country: US (occurrence: US)
  Receive Date: 20140423
  Receipt Date: 20140423
  Transmission Date: 20141212
  Serious: No
  Sender: FDA-Public Use
  Company Number: US-GILEAD-2013-0073547

PATIENT
  Sex: Female

DRUGS (6)
  1. LETAIRIS [Suspect]
     Indication: PULMONARY ARTERIAL HYPERTENSION
     Dosage: 10 MG, QD
     Dates: start: 20120401, end: 20130412
  2. CELEXA                             /00582602/ [Concomitant]
  3. NEURONTIN [Concomitant]
  4. AMLODIPINE [Concomitant]
  5. MELOXICAM [Concomitant]
  6. OMEPRAZOLE [Concomitant]

REACTIONS (5)
  - Hyperhidrosis [Recovering/Resolving]
  - Insomnia [Recovering/Resolving]
  - Unevaluable event [Recovering/Resolving]
  - Oropharyngeal pain [Recovering/Resolving]
  - Flushing [Recovering/Resolving]
